FAERS Safety Report 7030622-3 (Version None)
Quarter: 2010Q4

REPORT INFORMATION
  Report Type: 
  Country: None (occurrence: None)
  Receive Date: 20101004
  Receipt Date: 20100922
  Transmission Date: 20110411
  Serious: Yes (Hospitalization)
  Sender: FDA-Public Use
  Company Number: 2010090069

PATIENT
  Age: 75 Year
  Sex: Male

DRUGS (10)
  1. TORSEMIDE [Suspect]
     Dosage: 1 DOSAGE FORMS (1 DOSAGE FORMS, 1 IN 1 D), ORAL
     Route: 048
     Dates: start: 20090301, end: 20090401
  2. LASIX [Suspect]
     Dosage: 250 MG (125 MG, 2 IN 1 D), ORAL
     Route: 048
     Dates: start: 20070101, end: 20090327
  3. ALDACTONE [Suspect]
     Dosage: 25 MG (25 MG, 1 IN 1 D), ORAL
     Route: 048
  4. COZAAR [Suspect]
     Dosage: 50 MG (50 MG, 1 IN 1 D), ORAL
     Route: 048
  5. MARCUMAR [Concomitant]
  6. CORDARONE [Concomitant]
  7. SIMVASTATIN [Concomitant]
  8. METOPROLOL SUCCINATE [Concomitant]
  9. SERTRALIN (SERTRALINE) [Concomitant]
  10. XANAX [Concomitant]

REACTIONS (13)
  - CARDIAC FAILURE [None]
  - CHEYNE-STOKES RESPIRATION [None]
  - DIARRHOEA [None]
  - FALL [None]
  - HYPERVENTILATION [None]
  - HYPOVOLAEMIA [None]
  - NOCTURNAL DYSPNOEA [None]
  - ORTHOSTATIC HYPOTENSION [None]
  - PARAESTHESIA [None]
  - PNEUMONIA [None]
  - RENAL FAILURE ACUTE [None]
  - SLEEP APNOEA SYNDROME [None]
  - SOMATOFORM DISORDER [None]
